FAERS Safety Report 12706520 (Version 1)
Quarter: 2016Q3

REPORT INFORMATION
  Report Type: Spontaneous
  Country: US (occurrence: US)
  Receive Date: 20160901
  Receipt Date: 20160901
  Transmission Date: 20161109
  Serious: No
  Sender: FDA-Public Use
  Company Number: US-PFIZER INC-2016410904

PATIENT
  Age: 58 Year
  Sex: Female

DRUGS (5)
  1. FEMARA [Concomitant]
     Active Substance: LETROZOLE
     Dosage: UNK
  2. VENLAFAXINE HCL [Concomitant]
     Active Substance: VENLAFAXINE HYDROCHLORIDE
     Dosage: UNK
  3. IBRANCE [Suspect]
     Active Substance: PALBOCICLIB
     Indication: BREAST CANCER
     Dosage: 125 MG, CYCLIC (WITH FOOD ON DAYS 1 THROUGH 21, FOLLOWED BY 7 DAYS OFF)
     Route: 048
  4. STOOL SOFTENER [Concomitant]
     Active Substance: DOCUSATE CALCIUM
     Dosage: UNK
  5. OXYCONTIN [Concomitant]
     Active Substance: OXYCODONE HYDROCHLORIDE
     Dosage: UNK

REACTIONS (1)
  - White blood cell count decreased [Unknown]
